FAERS Safety Report 18882832 (Version 1)
Quarter: 2021Q1

REPORT INFORMATION
  Report Type: Other
  Country: US (occurrence: US)
  Receive Date: 20210212
  Receipt Date: 20210212
  Transmission Date: 20210420
  Serious: Yes (Hospitalization, Other)
  Sender: FDA-Public Use
  Company Number: US-NUVO PHARMACEUTICALS INC-2106673

PATIENT
  Age: 65 Year
  Sex: Male

DRUGS (2)
  1. DIAZEPAM. [Suspect]
     Active Substance: DIAZEPAM
     Indication: LETHARGY
     Route: 065
  2. MIRTAZAPINE. [Suspect]
     Active Substance: MIRTAZAPINE
     Route: 065

REACTIONS (8)
  - Transaminases increased [Unknown]
  - Encephalopathy [Unknown]
  - Hypercalcaemia of malignancy [Unknown]
  - Lactic acidosis [Not Recovered/Not Resolved]
  - Acute kidney injury [Unknown]
  - Hypercapnia [Unknown]
  - Delirium [Unknown]
  - Hyperammonaemia [Unknown]
